FAERS Safety Report 4294639-4 (Version None)
Quarter: 2004Q1

REPORT INFORMATION
  Report Type: 
  Country: None (occurrence: None)
  Receive Date: 20040211
  Receipt Date: 20040203
  Transmission Date: 20041129
  Serious: Yes (Death, Hospitalization, Other)
  Sender: FDA-Public Use
  Company Number: USA031051201

PATIENT
  Age: 56 Year
  Sex: Female

DRUGS (15)
  1. XIGRIS [Suspect]
     Indication: SEPTIC SHOCK
     Dates: start: 20030926, end: 20030927
  2. ROCEPHIN [Concomitant]
  3. VANCOMYCIN [Concomitant]
  4. ZOSYN [Concomitant]
  5. RIFAMPIN [Concomitant]
  6. FLUCONAZOLE [Concomitant]
  7. AMIODARONE [Concomitant]
  8. DIGOXIN [Concomitant]
  9. DILTIAZEM [Concomitant]
  10. LABETALOL HCL [Concomitant]
  11. DOBUTAMINE [Concomitant]
  12. DOPAMINE HCL [Concomitant]
  13. NOREPINEPHRINE [Concomitant]
  14. PROPOFOL [Concomitant]
  15. TPN [Concomitant]

REACTIONS (2)
  - CEREBRAL INFARCTION [None]
  - STAPHYLOCOCCAL SEPSIS [None]
